FAERS Safety Report 14631942 (Version 20)
Quarter: 2019Q1

REPORT INFORMATION
  Report Type: Spontaneous
  Country: CA (occurrence: CA)
  Receive Date: 20180313
  Receipt Date: 20190328
  Transmission Date: 20190417
  Serious: Yes (Hospitalization, Other)
  Sender: FDA-Public Use
  Company Number: CA-CELLTRION INC.-2017CA011660

PATIENT

DRUGS (16)
  1. INFLECTRA [Suspect]
     Active Substance: INFLIXIMAB-DYYB
     Dosage: 500 MG, (THEN EVERY 8 WEEKS)
     Route: 042
     Dates: start: 20171228, end: 20171228
  2. INFLECTRA [Suspect]
     Active Substance: INFLIXIMAB-DYYB
     Dosage: 600 MG ( EVERY 4 WEEKS)
     Route: 042
  3. INFLECTRA [Suspect]
     Active Substance: INFLIXIMAB-DYYB
     Dosage: 500 MG EVERY 8 WEEKS
     Route: 042
     Dates: start: 20180305, end: 20180504
  4. INFLECTRA [Suspect]
     Active Substance: INFLIXIMAB-DYYB
     Dosage: 600 MG, ( EVERY 0,2,6 WEEKS THEN EVERY 4 WEEKS)
     Route: 042
     Dates: start: 20181112
  5. VITAMIN D [Concomitant]
     Active Substance: CHOLECALCIFEROL
     Dosage: UNK
  6. FOLIC ACID. [Concomitant]
     Active Substance: FOLIC ACID
     Dosage: UNK
  7. INFLECTRA [Suspect]
     Active Substance: INFLIXIMAB-DYYB
     Dosage: 500 MG, EVERY 8 WEEKS
     Route: 042
     Dates: start: 20180504, end: 20180504
  8. INFLECTRA [Suspect]
     Active Substance: INFLIXIMAB-DYYB
     Dosage: 600 MG, ( EVERY 0,2,6 WEEKS THEN EVERY 4 WEEKS)
     Route: 042
     Dates: start: 20180618
  9. INFLECTRA [Suspect]
     Active Substance: INFLIXIMAB-DYYB
     Dosage: 600 MG, ( EVERY 0,2,6 WEEKS THEN EVERY 4 WEEKS)
     Route: 042
     Dates: start: 20180815
  10. PURINETHOL [Concomitant]
     Active Substance: MERCAPTOPURINE
     Dosage: UNK
  11. INFLECTRA [Suspect]
     Active Substance: INFLIXIMAB-DYYB
     Dosage: 600 MG,( EVERY 0,2,6 WEEKS THEN EVERY 4 WEEKS)
     Route: 042
     Dates: start: 20181218, end: 20181218
  12. INFLECTRA [Suspect]
     Active Substance: INFLIXIMAB-DYYB
     Indication: CROHN^S DISEASE
     Dosage: 300 MG, (EVERY 0,2,6 WEEKS, THEN EVERY 8 WEEKS)
     Route: 042
     Dates: start: 20170920, end: 20171228
  13. INFLECTRA [Suspect]
     Active Substance: INFLIXIMAB-DYYB
     Dosage: 750 MG, EVERY 8 WEEKS
     Route: 042
     Dates: start: 20180618, end: 20180618
  14. INFLECTRA [Suspect]
     Active Substance: INFLIXIMAB-DYYB
     Dosage: 600 MG, ( EVERY 0,2,6 WEEKS THEN EVERY 4 WEEKS)
     Route: 042
     Dates: start: 20180912, end: 2018
  15. NORETHINDRONE. [Concomitant]
     Active Substance: NORETHINDRONE
     Dosage: UNK
  16. CALCIUM [Concomitant]
     Active Substance: CALCIUM
     Dosage: UNK

REACTIONS (13)
  - Therapy non-responder [Unknown]
  - Decreased appetite [Unknown]
  - Crohn^s disease [Not Recovered/Not Resolved]
  - Drug effect incomplete [Not Recovered/Not Resolved]
  - Prescribed overdose [Unknown]
  - Drug level below therapeutic [Not Recovered/Not Resolved]
  - Alopecia [Unknown]
  - Fistula [Unknown]
  - Product use issue [Unknown]
  - Product use issue [Unknown]
  - Intestinal obstruction [Unknown]
  - Weight decreased [Unknown]
  - Condition aggravated [Not Recovered/Not Resolved]

NARRATIVE: CASE EVENT DATE: 20180628
